FAERS Safety Report 7536653-9 (Version None)
Quarter: 2011Q2

REPORT INFORMATION
  Report Type: 
  Country: None (occurrence: None)
  Receive Date: 20110609
  Receipt Date: 20090602
  Transmission Date: 20111010
  Serious: Yes (Hospitalization)
  Sender: FDA-Public Use
  Company Number: A0790554A

PATIENT
  Age: 52 Year
  Sex: Female
  Weight: 181.8 kg

DRUGS (9)
  1. HUMULIN R [Concomitant]
  2. DETROL LA [Concomitant]
  3. LASIX [Concomitant]
  4. GLUCOTROL [Concomitant]
  5. LIPITOR [Concomitant]
  6. ASPIRIN [Concomitant]
  7. ROSIGLITAZONE [Suspect]
     Route: 048
     Dates: start: 20020501, end: 20070801
  8. LOTREL [Concomitant]
  9. GLIPIZIDE [Concomitant]

REACTIONS (3)
  - CORONARY ARTERY DISEASE [None]
  - CARDIAC FAILURE CONGESTIVE [None]
  - SUPRAVENTRICULAR TACHYCARDIA [None]
